FAERS Safety Report 7068613-9 (Version None)
Quarter: 2010Q4

REPORT INFORMATION
  Report Type: 
  Country: None (occurrence: None)
  Receive Date: 20101027
  Receipt Date: 20101027
  Transmission Date: 20110411
  Serious: Yes (Disabling, Other)
  Sender: FDA-Public Use
  Company Number: None

PATIENT
  Age: 39 Year
  Sex: Female
  Weight: 41.7309 kg

DRUGS (4)
  1. METOCLOPRAMIDE [Suspect]
     Indication: CONTUSION
     Dosage: 5 MG ONE A DAY UNK
     Dates: start: 20100715, end: 20100715
  2. METOCLOPRAMIDE [Suspect]
     Indication: DIZZINESS
     Dosage: 5 MG ONE A DAY UNK
     Dates: start: 20100715, end: 20100715
  3. METOCLOPRAMIDE [Suspect]
     Indication: NAUSEA
     Dosage: 5 MG ONE A DAY UNK
     Dates: start: 20100715, end: 20100715
  4. NATURAL SUPPLEMENTS -VITAMINS, MINERALS, ENZYMES, HERBS, ETC., [Concomitant]

REACTIONS (3)
  - DIZZINESS [None]
  - EPISTAXIS [None]
  - UPPER-AIRWAY COUGH SYNDROME [None]
